FAERS Safety Report 17229770 (Version 2)
Quarter: 2020Q1

REPORT INFORMATION
  Report Type: Spontaneous
  Country: US (occurrence: US)
  Receive Date: 20200103
  Receipt Date: 20200203
  Transmission Date: 20200409
  Serious: No
  Sender: FDA-Public Use
  Company Number: US-JNJFOC-20191243898

PATIENT
  Age: 56 Year
  Sex: Male
  Weight: 106.69 kg

DRUGS (2)
  1. SIMPONI [Suspect]
     Active Substance: GOLIMUMAB
     Indication: COLITIS ULCERATIVE
     Route: 058
     Dates: start: 201910
  2. SIMPONI [Suspect]
     Active Substance: GOLIMUMAB
     Indication: CROHN^S DISEASE

REACTIONS (2)
  - Product dose omission [Unknown]
  - Drug delivery system malfunction [Unknown]

NARRATIVE: CASE EVENT DATE: 20191223
